FAERS Safety Report 15926982 (Version 8)
Quarter: 2020Q2

REPORT INFORMATION
  Report Type: Report from Study
  Country: DE (occurrence: DE)
  Receive Date: 20190206
  Receipt Date: 20200622
  Transmission Date: 20200713
  Serious: Yes (Hospitalization)
  Sender: FDA-Public Use
  Company Number: DE-ACTELION-A-CH2019-185707

PATIENT
  Age: 81 Year
  Sex: Male
  Weight: 106 kg

DRUGS (19)
  1. UPTRAVI [Suspect]
     Active Substance: SELEXIPAG
     Dosage: 1000 MCG, QD
     Route: 048
     Dates: start: 20181119, end: 20181127
  2. METAMIZOL NATRIUM [Concomitant]
     Active Substance: METAMIZOLE SODIUM
     Indication: ANALGESIC THERAPY
     Dosage: UNK
     Route: 048
  3. SIMVASTATIN. [Concomitant]
     Active Substance: SIMVASTATIN
     Indication: BLOOD CHOLESTEROL INCREASED
     Dosage: UNK
     Route: 048
     Dates: end: 20190813
  4. DEKRISTOL [Concomitant]
     Active Substance: CHOLECALCIFEROL
     Indication: VITAMIN SUPPLEMENTATION
     Dosage: UNK
     Route: 048
     Dates: end: 20190813
  5. UPTRAVI [Suspect]
     Active Substance: SELEXIPAG
     Dosage: 1200 MCG, QD
     Route: 048
     Dates: start: 20181127
  6. AMBRISENTAN [Concomitant]
     Active Substance: AMBRISENTAN
     Dosage: 20 MG, QD
     Route: 048
     Dates: start: 20190903
  7. UPTRAVI [Suspect]
     Active Substance: SELEXIPAG
     Indication: PULMONARY ARTERIAL HYPERTENSION
     Dosage: 400 MCG, QD
     Route: 048
     Dates: start: 20181015, end: 20181113
  8. AMBRISENTAN [Concomitant]
     Active Substance: AMBRISENTAN
     Indication: PULMONARY ARTERIAL HYPERTENSION
     Dosage: 10 MG, QD
     Route: 048
     Dates: start: 20151107, end: 20190902
  9. FEXOFENADINE [Concomitant]
     Active Substance: FEXOFENADINE HYDROCHLORIDE
     Indication: ANTIALLERGIC THERAPY
     Dosage: UNK
     Route: 048
  10. ADCIRCA [Concomitant]
     Active Substance: TADALAFIL
     Indication: PULMONARY ARTERIAL HYPERTENSION
     Dosage: 40 MG, QD
     Route: 048
     Dates: start: 20151107
  11. METOPROLOL. [Concomitant]
     Active Substance: METOPROLOL
     Dosage: UNK
     Route: 048
  12. PANTOPRAZOL [Concomitant]
     Active Substance: PANTOPRAZOLE SODIUM
     Dosage: UNK
     Route: 048
  13. AMIODARON [Concomitant]
     Active Substance: AMIODARONE
     Dosage: UNK
     Route: 048
     Dates: start: 20190812
  14. AMIODARON [Concomitant]
     Active Substance: AMIODARONE
     Dosage: UNK
     Route: 042
  15. XARELTO [Concomitant]
     Active Substance: RIVAROXABAN
     Indication: ANTICOAGULANT THERAPY
     Dosage: UNK
     Route: 048
     Dates: start: 2015
  16. OXYGEN. [Concomitant]
     Active Substance: OXYGEN
     Indication: OXYGEN THERAPY
     Dosage: UNK
     Route: 055
  17. BIFITERAL [Concomitant]
     Active Substance: LACTULOSE
     Indication: CONSTIPATION
     Dosage: UNK
     Route: 048
     Dates: start: 20190808
  18. UPTRAVI [Suspect]
     Active Substance: SELEXIPAG
     Dosage: 800 MCG, QD
     Route: 048
     Dates: start: 20181113, end: 20181119
  19. TORASEMID [Concomitant]
     Active Substance: TORSEMIDE
     Indication: DIURETIC THERAPY
     Dosage: UNK
     Route: 048

REACTIONS (13)
  - Pulmonary arterial hypertension [Not Recovered/Not Resolved]
  - N-terminal prohormone brain natriuretic peptide increased [Unknown]
  - Cardioversion [Recovered/Resolved]
  - Blood urea increased [Unknown]
  - Blood uric acid increased [Unknown]
  - Cardiac failure [Recovered/Resolved]
  - Disease progression [Not Recovered/Not Resolved]
  - Glomerular filtration rate decreased [Unknown]
  - Condition aggravated [Not Recovered/Not Resolved]
  - Atrial flutter [Recovered/Resolved]
  - Diverticulitis [Recovered/Resolved with Sequelae]
  - Blood creatinine increased [Unknown]
  - Hyperthyroidism [Recovered/Resolved]

NARRATIVE: CASE EVENT DATE: 20190116
